FAERS Safety Report 7429032-6 (Version None)
Quarter: 2011Q2

REPORT INFORMATION
  Report Type: 
  Country: None (occurrence: None)
  Receive Date: 20110421
  Receipt Date: 20110411
  Transmission Date: 20111010
  Serious: Yes (Life-Threatening, Hospitalization)
  Sender: FDA-Public Use
  Company Number: US-ROCHE-760387

PATIENT
  Sex: Female
  Weight: 73 kg

DRUGS (19)
  1. CALCIUM [Concomitant]
  2. TRAMADOL HCL [Concomitant]
     Indication: PAIN
  3. ACTEMRA [Suspect]
     Route: 042
     Dates: start: 20100713, end: 20100713
  4. ACTEMRA [Suspect]
     Route: 042
     Dates: start: 20101007, end: 20101007
  5. PREDNISONE [Concomitant]
     Indication: RHEUMATOID ARTHRITIS
     Route: 048
     Dates: start: 20060101
  6. ACTEMRA [Suspect]
     Route: 042
     Dates: start: 20101202, end: 20101202
  7. ACTEMRA [Suspect]
     Route: 042
     Dates: start: 20110106, end: 20110106
  8. ACTEMRA [Suspect]
     Indication: RHEUMATOID ARTHRITIS
     Dosage: INFUSION
     Route: 042
     Dates: start: 20100517, end: 20100517
  9. ACTEMRA [Suspect]
     Route: 042
     Dates: start: 20100909, end: 20100909
  10. ACTEMRA [Suspect]
     Route: 042
     Dates: start: 20101104, end: 20101104
  11. SEASONIQUE [Suspect]
     Indication: ORAL CONTRACEPTION
     Dosage: DRUG:LO-SEASONIC
     Route: 048
     Dates: start: 20100101, end: 20110206
  12. FOLIC ACID [Concomitant]
     Indication: RHEUMATOID ARTHRITIS
     Route: 048
     Dates: start: 20060101
  13. ACTEMRA [Suspect]
     Route: 042
     Dates: start: 20100615, end: 20100615
  14. ACTEMRA [Suspect]
     Route: 042
     Dates: start: 20100813, end: 20100813
  15. ACTEMRA [Suspect]
     Route: 042
     Dates: start: 20110203
  16. METHOTREXATE [Concomitant]
     Indication: RHEUMATOID ARTHRITIS
     Route: 048
     Dates: start: 20060101
  17. ZOLOFT [Concomitant]
     Indication: DEPRESSION
     Dates: start: 20060101
  18. ETODOLAC [Concomitant]
     Indication: RHEUMATOID ARTHRITIS
     Route: 048
     Dates: start: 20060101, end: 20110330
  19. VICODIN [Concomitant]
     Indication: PAIN
     Dosage: VICODIN 5 500; 1-2 TABLETS; AS NEEDED
     Dates: start: 20090216, end: 20110214

REACTIONS (1)
  - PULMONARY EMBOLISM [None]
